FAERS Safety Report 18035755 (Version 1)
Quarter: 2020Q3

REPORT INFORMATION
  Report Type: Spontaneous
  Country: US (occurrence: US)
  Receive Date: 20200717
  Receipt Date: 20200717
  Transmission Date: 20201103
  Serious: Yes (Other)
  Sender: FDA-Public Use
  Company Number: None

PATIENT
  Age: 83 Year
  Sex: Female
  Weight: 60.92 kg

DRUGS (1)
  1. NEULASTA [Suspect]
     Active Substance: PEGFILGRASTIM
     Route: 058

REACTIONS (3)
  - Leukopenia [None]
  - Device adhesion issue [None]
  - White blood cell count decreased [None]

NARRATIVE: CASE EVENT DATE: 20200623
